FAERS Safety Report 6230578-7 (Version None)
Quarter: 2009Q2

REPORT INFORMATION
  Report Type: 
  Country: None (occurrence: None)
  Receive Date: 20090615
  Receipt Date: 20090506
  Transmission Date: 20091009
  Serious: No
  Sender: FDA-Public Use
  Company Number: US-ABBOTT-09P-163-0571902-00

PATIENT
  Sex: Male
  Weight: 81.72 kg

DRUGS (2)
  1. TRILIPIX [Suspect]
     Indication: BLOOD CHOLESTEROL INCREASED
     Route: 048
     Dates: start: 20090312
  2. COZAAR [Concomitant]
     Indication: HYPERTENSION
     Route: 048

REACTIONS (1)
  - DEPRESSION [None]
